FAERS Safety Report 15680689 (Version 1)
Quarter: 2018Q4

REPORT INFORMATION
  Report Type: Spontaneous
  Country: US (occurrence: US)
  Receive Date: 20181120
  Receipt Date: 20181120
  Transmission Date: 20190205
  Serious: Yes (Other)
  Sender: FDA-Public Use
  Company Number: None

PATIENT
  Age: 54 Year
  Sex: Female
  Weight: 72 kg

DRUGS (7)
  1. VEGAN VITAMIN D 400 IU [Concomitant]
  2. MEMANTINE HCL [Concomitant]
     Active Substance: MEMANTINE
  3. AIMOVIG [Suspect]
     Active Substance: ERENUMAB-AOOE
     Indication: MIGRAINE
     Dosage: ?          QUANTITY:2 INJECTION(S);OTHER FREQUENCY:ONCE MONTHLY;?
     Route: 058
     Dates: start: 20181115, end: 20181115
  4. VERAMPIL HCL ER [Concomitant]
  5. VEGAN VITAMIN B-2 [Concomitant]
  6. GLUCOSAMINE [Concomitant]
     Active Substance: GLUCOSAMINE
  7. TOPROL XL [Concomitant]
     Active Substance: METOPROLOL SUCCINATE

REACTIONS (14)
  - Migraine [None]
  - Myalgia [None]
  - Muscle spasms [None]
  - Abdominal discomfort [None]
  - Arthralgia [None]
  - Tinnitus [None]
  - Dizziness [None]
  - Condition aggravated [None]
  - Joint range of motion decreased [None]
  - Back pain [None]
  - Insomnia [None]
  - Pain [None]
  - Neck pain [None]
  - Constipation [None]

NARRATIVE: CASE EVENT DATE: 20181115
